FAERS Safety Report 5903578-1 (Version None)
Quarter: 2008Q3

REPORT INFORMATION
  Report Type: 
  Country: None (occurrence: None)
  Receive Date: 20080919
  Receipt Date: 20080811
  Transmission Date: 20090109
  Serious: No
  Sender: FDA-Public Use
  Company Number: US-WYE-H05565808

PATIENT
  Sex: Female
  Weight: 79.45 kg

DRUGS (6)
  1. PRISTIQ (DESVENLAFAXINE SUCCINATE MONOHYDRATE,TABLET [Suspect]
     Indication: DEPRESSION
     Dosage: 50 MG 1X PER 1 DAY, ORAL
     Route: 048
     Dates: start: 20080701
  2. EFFEXOR XR [Suspect]
     Dosage: 150 MG 1X PER DAY : 300 MG 1X PER DAY
     Dates: end: 20080701
  3. SYNTHROID [Concomitant]
  4. ROZEREM [Concomitant]
  5. NEURONTIN [Concomitant]
  6. FLEXERIL [Concomitant]

REACTIONS (2)
  - DYSKINESIA [None]
  - MUSCLE TWITCHING [None]
